FAERS Safety Report 13770603 (Version 1)
Quarter: 2017Q3

REPORT INFORMATION
  Report Type: Spontaneous
  Country: FR (occurrence: FR)
  Receive Date: 20170719
  Receipt Date: 20170719
  Transmission Date: 20171127
  Serious: Yes (Other)
  Sender: FDA-Public Use
  Company Number: FR-BAYER-2017-134643

PATIENT
  Age: 38 Year
  Sex: Female

DRUGS (1)
  1. MIRENA [Suspect]
     Active Substance: LEVONORGESTREL
     Indication: CHEMICAL CONTRACEPTION
     Dosage: 20 MCG/24HR, CONT
     Route: 015
     Dates: start: 20120201, end: 20170522

REACTIONS (7)
  - Memory impairment [Unknown]
  - Asthenia [Unknown]
  - Speech disorder [Recovered/Resolved]
  - Abulia [Unknown]
  - Affective disorder [Unknown]
  - Depression [Unknown]
  - Libido decreased [Unknown]

NARRATIVE: CASE EVENT DATE: 2015
